FAERS Safety Report 10144331 (Version 2)
Quarter: 2014Q2

REPORT INFORMATION
  Report Type: Spontaneous
  Country: US (occurrence: US)
  Receive Date: 20140430
  Receipt Date: 20140516
  Transmission Date: 20141212
  Serious: No
  Sender: FDA-Public Use
  Company Number: US-009507513-1404USA015003

PATIENT
  Sex: Female
  Weight: 61.68 kg

DRUGS (9)
  1. OXYTROL FOR WOMEN [Suspect]
     Indication: URINARY INCONTINENCE
     Dosage: UNK, UNKNOWN
     Route: 062
     Dates: start: 201403
  2. OXYTROL FOR WOMEN [Suspect]
     Indication: MICTURITION URGENCY
  3. ATORVASTATIN [Concomitant]
     Indication: BLOOD CHOLESTEROL ABNORMAL
     Dosage: 20 MG, UNKNOWN
  4. AMLODIPINE BESYLATE (+) HYDROCHLOROTHIAZIDE [Concomitant]
     Indication: BLOOD CHOLESTEROL ABNORMAL
     Dosage: UNK, UNKNOWN
  5. ZOLPIDEM TARTRATE [Concomitant]
     Indication: SLEEP DISORDER
     Dosage: 10 MG, UNKNOWN
  6. VITAMINS (UNSPECIFIED) [Concomitant]
     Indication: PRODUCT USED FOR UNKNOWN INDICATION
     Dosage: UNK, UNKNOWN
  7. ASPIRIN [Concomitant]
     Indication: ARTHRALGIA
     Dosage: 81 MG, UNKNOWN
  8. ASPIRIN [Concomitant]
     Indication: PAIN IN EXTREMITY
  9. DULOXETINE HYDROCHLORIDE [Concomitant]
     Indication: PRODUCT USED FOR UNKNOWN INDICATION
     Dosage: 60 MG, UNKNOWN

REACTIONS (5)
  - Application site erythema [Unknown]
  - Drug administered at inappropriate site [Unknown]
  - Inappropriate schedule of drug administration [Unknown]
  - Drug effect decreased [Unknown]
  - Product adhesion issue [Unknown]
